FAERS Safety Report 10195048 (Version 2)
Quarter: 2014Q2

REPORT INFORMATION
  Report Type: Report from Study
  Country: PH (occurrence: PH)
  Receive Date: 20140526
  Receipt Date: 20140609
  Transmission Date: 20141212
  Serious: Yes (Hospitalization)
  Sender: FDA-Public Use
  Company Number: PHHY2014PH062107

PATIENT
  Age: 61 Year
  Sex: Male

DRUGS (10)
  1. TASIGNA [Suspect]
     Dosage: 800 MG, UNK
     Route: 048
     Dates: start: 20130711, end: 20130827
  2. TASIGNA [Suspect]
     Dosage: 600 MG, UNK
     Route: 048
     Dates: start: 20130827, end: 20140306
  3. TASIGNA [Suspect]
     Dosage: 200 MG, UNK
     Route: 048
     Dates: start: 20140306, end: 20140309
  4. TASIGNA [Suspect]
     Dosage: 800 MG, UNK
     Route: 048
     Dates: start: 20140310, end: 20140406
  5. TASIGNA [Suspect]
     Dosage: 200 MG, UNK
     Route: 048
     Dates: start: 20140407, end: 20140412
  6. TASIGNA [Suspect]
     Dosage: 800 MG, UNK
     Route: 048
     Dates: start: 20140413
  7. POLYNERV [Concomitant]
  8. LOSARTAN [Concomitant]
  9. AMLODIPINE [Concomitant]
  10. CARVEDILOL [Concomitant]

REACTIONS (5)
  - Cholelithiasis [Recovered/Resolved]
  - Cerebrovascular accident [Recovered/Resolved]
  - Motor dysfunction [Unknown]
  - Hypoaesthesia [Recovering/Resolving]
  - Vision blurred [Recovering/Resolving]
